FAERS Safety Report 21070885 (Version 1)
Quarter: 2022Q3

REPORT INFORMATION
  Report Type: Spontaneous
  Country: FR (occurrence: FR)
  Receive Date: 20220712
  Receipt Date: 20220712
  Transmission Date: 20221027
  Serious: Yes (Hospitalization)
  Sender: FDA-Public Use
  Company Number: None

PATIENT
  Age: 57 Year
  Sex: Male
  Weight: 75 kg

DRUGS (3)
  1. TOVIAZ [Suspect]
     Active Substance: FESOTERODINE FUMARATE
     Indication: Micturition urgency
     Dosage: 4 MG, 1X/DAY
     Route: 048
     Dates: start: 20210714, end: 20210715
  2. VALPROMIDE [Concomitant]
     Active Substance: VALPROMIDE
     Dosage: 300 MG
     Route: 048
  3. MIRTAZAPINE [Concomitant]
     Active Substance: MIRTAZAPINE
     Indication: Depression
     Dosage: 15 MG
     Route: 048

REACTIONS (1)
  - Bladder dilatation [Recovered/Resolved]

NARRATIVE: CASE EVENT DATE: 20210714
